FAERS Safety Report 8922652 (Version 1)
Quarter: 2012Q4

REPORT INFORMATION
  Report Type: 
  Country: US (occurrence: US)
  Receive Date: 20121123
  Receipt Date: 20121123
  Transmission Date: 20130627
  Serious: No
  Sender: FDA-Public Use
  Company Number: US-PFIZER INC-2012290970

PATIENT
  Sex: Female

DRUGS (1)
  1. LYRICA [Suspect]
     Indication: TOOTH DISORDER
     Dosage: UNK, for 13 days occasionally

REACTIONS (3)
  - Vision blurred [Unknown]
  - Therapeutic response unexpected [Unknown]
  - Off label use [Unknown]
